FAERS Safety Report 5908063-9 (Version None)
Quarter: 2008Q4

REPORT INFORMATION
  Report Type: 
  Country: None (occurrence: None)
  Receive Date: 20081003
  Receipt Date: 20080923
  Transmission Date: 20090506
  Serious: Yes (Other)
  Sender: FDA-Public Use
  Company Number: US-PFIZER INC-2008080121

PATIENT
  Sex: Male

DRUGS (9)
  1. XANAX [Suspect]
  2. MORPHINE SULFATE INJ [Suspect]
  3. OXYCONTIN [Suspect]
  4. VICODIN [Suspect]
  5. LEXAPRO [Suspect]
  6. MARIJUANA [Suspect]
  7. COCAINE [Suspect]
  8. METHYLENEDIOXYMETHAMPHETAMINE [Suspect]
  9. HEROIN [Suspect]

REACTIONS (2)
  - AGGRESSION [None]
  - DRUG ABUSE [None]
